FAERS Safety Report 9604627 (Version 2)
Quarter: 2013Q4

REPORT INFORMATION
  Report Type: Report from Study
  Country: NL (occurrence: NL)
  Receive Date: 20131008
  Receipt Date: 20131008
  Transmission Date: 20140711
  Serious: Yes (Hospitalization)
  Sender: FDA-Public Use
  Company Number: NL-ABBVIE-12P-114-0936751-00

PATIENT
  Sex: Male

DRUGS (1)
  1. LUCRIN DEPOT 11.25 MG [Suspect]
     Indication: PROSTATE CANCER
     Route: 058
     Dates: start: 2009

REACTIONS (2)
  - Hospitalisation [Unknown]
  - Hot flush [Not Recovered/Not Resolved]
